FAERS Safety Report 5583041-0 (Version None)
Quarter: 2008Q1

REPORT INFORMATION
  Report Type: 
  Country: None (occurrence: None)
  Receive Date: 20080107
  Receipt Date: 20071228
  Transmission Date: 20080703
  Serious: Yes (Other)
  Sender: FDA-Public Use
  Company Number: A0701530A

PATIENT
  Sex: Male
  Weight: 0.6 kg

DRUGS (6)
  1. LAMOTRIGINE [Suspect]
     Indication: BIPOLAR DISORDER
     Dosage: 200MG PER DAY
     Dates: start: 20040407
  2. SEROQUEL [Concomitant]
     Dosage: 500MG PER DAY
  3. EFFEXOR [Concomitant]
     Dosage: 112.5MG PER DAY
  4. METHYLDOPA [Concomitant]
     Dosage: 500MG PER DAY
  5. CONCERTA [Concomitant]
     Dosage: 54MG PER DAY
  6. INSULIN [Concomitant]

REACTIONS (3)
  - DRUG EXPOSURE DURING PREGNANCY [None]
  - FOETAL GROWTH RETARDATION [None]
  - PREMATURE BABY [None]
